FAERS Safety Report 24569917 (Version 1)
Quarter: 2024Q4

REPORT INFORMATION
  Report Type: Spontaneous
  Country: US (occurrence: US)
  Receive Date: 20241031
  Receipt Date: 20241031
  Transmission Date: 20250114
  Serious: Yes (Other)
  Sender: AMGEN
  Company Number: US-AMGEN-USASP2024211201

PATIENT
  Age: 7 Year
  Sex: Female

DRUGS (12)
  1. RITUXIMAB [Suspect]
     Active Substance: RITUXIMAB
     Indication: Sickle cell disease
     Dosage: 375 MILLIGRAM/SQ. METER, QWK, FOR FOUR WEEKS
     Route: 040
  2. PREDNISONE [Suspect]
     Active Substance: PREDNISONE
     Indication: Prophylaxis
     Dosage: 1 MILLIGRAM/KILOGRAM, BID, FOR 5 DAYS
     Route: 048
  3. PREDNISONE [Suspect]
     Active Substance: PREDNISONE
     Dosage: 0.25 MILLIGRAM/KILOGRAM, EVERY 2 DAYS
     Route: 048
  4. PREDNISONE [Suspect]
     Active Substance: PREDNISONE
     Dosage: 1 MILLIGRAM/KILOGRAM, Q12H
     Route: 048
  5. PREDNISONE [Suspect]
     Active Substance: PREDNISONE
     Dosage: 0.25 MILLIGRAM/KILOGRAM, QWK
     Route: 048
  6. METHYLPREDNISOLONE [Concomitant]
     Active Substance: METHYLPREDNISOLONE
     Dosage: 1 MILLIGRAM/KILOGRAM, Q12H, FOR 2 DAYS
     Route: 040
  7. METHYLPREDNISOLONE [Concomitant]
     Active Substance: METHYLPREDNISOLONE
     Dosage: 1 MILLIGRAM/KILOGRAM, Q12H, FOR 9 DAYS
     Route: 040
  8. METHYLPREDNISOLONE [Concomitant]
     Active Substance: METHYLPREDNISOLONE
     Dosage: 0.9 MILLIGRAM/KILOGRAM, Q12H, FOR 3 DAYS
     Route: 040
  9. Immunoglobulin [Concomitant]
     Dosage: 0.85 GRAM PER KILOGRAM
     Route: 040
  10. Immunoglobulin [Concomitant]
     Dosage: 0.4 GRAM PER KILOGRAM, FOR FIVE DAYS
     Route: 040
  11. HYDROXYUREA [Concomitant]
     Active Substance: HYDROXYUREA
     Dosage: 20 MILLIGRAM/KILOGRAM, QD
  12. HYDROXYUREA [Concomitant]
     Active Substance: HYDROXYUREA
     Dosage: 25 MILLIGRAM/KILOGRAM, QD

REACTIONS (2)
  - Delayed haemolytic transfusion reaction [Unknown]
  - Off label use [Unknown]
